FAERS Safety Report 11524934 (Version 1)
Quarter: 2015Q3

REPORT INFORMATION
  Report Type: Spontaneous
  Country: US (occurrence: US)
  Receive Date: 20150918
  Receipt Date: 20150918
  Transmission Date: 20151125
  Serious: No
  Sender: FDA-Public Use
  Company Number: US-ROCHE-722134

PATIENT
  Sex: Male

DRUGS (2)
  1. COPEGUS [Suspect]
     Active Substance: RIBAVIRIN
     Indication: HEPATITIS C
     Dosage: ADDITIONAL INDICATION STAGE 1 LIVER BIOPSY;IN WEEK 4
     Route: 065
  2. PEGASYS [Suspect]
     Active Substance: PEGINTERFERON ALFA-2A
     Indication: HEPATITIS C
     Dosage: FORM: PREFILLED SYRINGE, ADDITIONAL INDICATION STAGE 1 LIVER BIOPSY;IN WEEK 4
     Route: 065

REACTIONS (7)
  - Influenza like illness [Unknown]
  - Red blood cell count decreased [Not Recovered/Not Resolved]
  - Fatigue [Not Recovered/Not Resolved]
  - Pruritus [Not Recovered/Not Resolved]
  - Insomnia [Unknown]
  - Irritability [Not Recovered/Not Resolved]
  - White blood cell count decreased [Not Recovered/Not Resolved]
